FAERS Safety Report 11280214 (Version 1)
Quarter: 2015Q3

REPORT INFORMATION
  Report Type: Spontaneous
  Country: US (occurrence: US)
  Receive Date: 20150717
  Receipt Date: 20150717
  Transmission Date: 20151125
  Serious: Yes (Other)
  Sender: FDA-Public Use
  Company Number: US-JNJFOC-20130712043

PATIENT
  Age: 71 Year
  Sex: Male

DRUGS (2)
  1. CLADRIBINE. [Suspect]
     Active Substance: CLADRIBINE
     Indication: NECROBIOSIS
     Dosage: DAYS 1, 2, 3, 4 AND 5 OF A 28 DAYS CYCLE
     Route: 042
  2. CLADRIBINE. [Suspect]
     Active Substance: CLADRIBINE
     Indication: XANTHOGRANULOMA
     Dosage: DAYS 1, 2, 3, 4 AND 5 OF A 28 DAYS CYCLE
     Route: 042

REACTIONS (2)
  - Product use issue [Recovered/Resolved]
  - Pancytopenia [Recovering/Resolving]
